FAERS Safety Report 5761404-8 (Version None)
Quarter: 2008Q2

REPORT INFORMATION
  Report Type: 
  Country: None (occurrence: None)
  Receive Date: 20080606
  Receipt Date: 20080526
  Transmission Date: 20081010
  Serious: Yes (Other)
  Sender: FDA-Public Use
  Company Number: NO-WYE-G01584008

PATIENT
  Sex: Male

DRUGS (34)
  1. EFFEXOR [Suspect]
     Dosage: DOSE UNKNOWN
     Route: 048
  2. ESCITALOPRAM [Suspect]
     Dosage: DOSE UNKNOWN
     Route: 048
     Dates: start: 20041015, end: 20060301
  3. NOZINAN [Suspect]
     Dosage: DOSE UNKNOWN
     Route: 048
  4. ZOLOFT [Suspect]
     Indication: DEPRESSION
     Dosage: DAILY DOSE 150 MG
     Route: 048
     Dates: start: 19970101, end: 19980101
  5. BUPRENORPHINE HYDROCHLORIDE [Concomitant]
     Dosage: DOSE UNKNOWN
     Route: 048
  6. SOMADRIL [Concomitant]
     Dosage: DOSE UNKNOWN
     Route: 048
  7. PARALGIN FORTE [Concomitant]
  8. SURMONTIL [Concomitant]
     Dosage: DOSE UNKNOWN
     Route: 048
  9. PAROXETINE HCL [Concomitant]
     Dosage: DOSE UNKNOWN
     Route: 048
  10. CITALOPRAM HYDROBROMIDE [Concomitant]
     Dosage: DOSE UNKNOWN
     Route: 048
  11. AKINETON [Concomitant]
     Dosage: DOSE UNKNOWN
     Route: 048
  12. REMERON [Concomitant]
     Dosage: DOSE UNKNOWN
     Route: 048
  13. SOMADRIL COMP. [Concomitant]
     Dosage: DOSE UNKNOWN
     Route: 048
  14. ZANTAC [Concomitant]
     Dosage: DOSE UNKNOWN
     Route: 048
  15. ESUCOS [Concomitant]
     Dosage: DOSE UNKNOWN
     Route: 048
  16. ZOLPIDEM TARTRATE [Concomitant]
     Dosage: DOSE UNKNOWN
     Route: 048
  17. IMOVANE [Concomitant]
     Dosage: DOSE UNKNOWN
     Route: 048
  18. VENTOLIN [Concomitant]
     Dosage: DOSE UNKNOWN
     Route: 055
  19. VALPROATE SODIUM [Concomitant]
     Dosage: DOSE UNKNOWN
     Route: 048
  20. TOLVON [Concomitant]
     Dosage: DOSE UNKNOWN
     Route: 048
  21. TRUXAL [Concomitant]
     Dosage: DOSE UNKNOWN
     Route: 048
  22. SOBRIL [Concomitant]
     Dosage: DOSE UNKNOWN
     Route: 048
  23. ZYPREXA [Concomitant]
     Dosage: DOSE UNKNOWN
     Route: 048
  24. DIAZEPAM [Concomitant]
     Dosage: DOSE UNKNOWN
     Route: 048
  25. MORPHINE [Concomitant]
  26. VALLERGAN [Concomitant]
     Dosage: DOSE UNKNOWN
     Route: 048
  27. TRAMADOL HCL [Concomitant]
     Dosage: DOSE UNKNOWN
     Route: 048
  28. RIVOTRIL [Concomitant]
     Dosage: DOSE UNKNOWN
     Route: 048
  29. XANOR [Concomitant]
     Dosage: DOSE UNKNOWN
     Route: 048
  30. LITAREX [Concomitant]
     Dosage: DOSE UNKNOWN
     Route: 048
  31. HEROIN [Concomitant]
  32. CANNABIS [Concomitant]
  33. AMPHETAMINE SULFATE [Concomitant]
  34. ANAFRANIL [Suspect]
     Dosage: DOSE UNKNOWN
     Route: 048

REACTIONS (8)
  - DEPRESSION [None]
  - DIZZINESS [None]
  - DRUG WITHDRAWAL SYNDROME [None]
  - ERECTILE DYSFUNCTION [None]
  - FATIGUE [None]
  - FEELING ABNORMAL [None]
  - SUICIDE ATTEMPT [None]
  - UNEVALUABLE EVENT [None]
